FAERS Safety Report 7005605-X (Version None)
Quarter: 2010Q3

REPORT INFORMATION
  Report Type: 
  Country: None (occurrence: None)
  Receive Date: 20100921
  Receipt Date: 20100914
  Transmission Date: 20110219
  Serious: Yes (Hospitalization)
  Sender: FDA-Public Use
  Company Number: A0881897A

PATIENT
  Age: 58 Year
  Sex: Male
  Weight: 124 kg

DRUGS (5)
  1. AVANDIA [Suspect]
  2. NIFEDIPINE [Suspect]
  3. METOPROLOL [Suspect]
  4. LOTREL [Suspect]
  5. BLINDED TRIAL MEDICATION [Concomitant]
     Indication: RENAL CELL CARCINOMA
     Route: 048
     Dates: start: 20091014, end: 20100801

REACTIONS (2)
  - CHEST PAIN [None]
  - MYOCARDIAL INFARCTION [None]
